FAERS Safety Report 17864082 (Version 1)
Quarter: 2020Q2

REPORT INFORMATION
  Report Type: Spontaneous
  Country: US (occurrence: US)
  Receive Date: 20200604
  Receipt Date: 20200604
  Transmission Date: 20200714
  Serious: Yes (Death)
  Sender: FDA-Public Use
  Company Number: None

PATIENT
  Age: 104 Year
  Sex: Female
  Weight: 45.36 kg

DRUGS (8)
  1. FOCUS FACTOR [Concomitant]
  2. MEDLINE STERILE WATER 100ML [Suspect]
     Active Substance: WATER
     Dosage: ?          QUANTITY:2 ML MILLILITRE(S);?
     Route: 058
  3. CENTRUM SILVER [Concomitant]
     Active Substance: MINERALS\VITAMINS
  4. CQ10 LIQUID [Concomitant]
  5. CALCIUM [Concomitant]
     Active Substance: CALCIUM
  6. VITAMIN C [Concomitant]
     Active Substance: ASCORBIC ACID
  7. VITAMIN D3 [Concomitant]
     Active Substance: CHOLECALCIFEROL
  8. FLONASE [Concomitant]
     Active Substance: FLUTICASONE PROPIONATE

REACTIONS (6)
  - Wrong product administered [None]
  - Oxygen saturation decreased [None]
  - Traumatic lung injury [None]
  - Incorrect route of product administration [None]
  - Wrong technique in product usage process [None]
  - Foaming at mouth [None]
